FAERS Safety Report 7092559-3 (Version None)
Quarter: 2010Q4

REPORT INFORMATION
  Report Type: 
  Country: None (occurrence: None)
  Receive Date: 20101110
  Receipt Date: 20101028
  Transmission Date: 20110411
  Serious: Yes (Hospitalization)
  Sender: FDA-Public Use
  Company Number: US-BAYER-201039504NA

PATIENT
  Age: 29 Year
  Sex: Female
  Weight: 73 kg

DRUGS (8)
  1. YAZ [Suspect]
     Indication: CONTRACEPTION
     Route: 048
     Dates: start: 20040101, end: 20090401
  2. YASMIN [Suspect]
     Indication: CONTRACEPTION
     Route: 048
     Dates: start: 20041201, end: 20090401
  3. IBUPROFEN [Concomitant]
     Indication: PAIN
     Route: 065
  4. TRIAMTERENE [Concomitant]
     Indication: HYPERTENSION
     Route: 065
     Dates: start: 20040101
  5. HYDROCHLOROTHIAZIDE [Concomitant]
     Route: 065
  6. TRIAMTERENE AND HYDROCHLOROTHIAZIDE [Concomitant]
     Route: 048
  7. NSAIDS [Concomitant]
     Route: 065
     Dates: start: 19960101
  8. ANTIBIOTICS [Concomitant]
     Route: 065
     Dates: start: 19960101

REACTIONS (5)
  - COITAL BLEEDING [None]
  - DEEP VEIN THROMBOSIS [None]
  - MYALGIA [None]
  - PAIN IN EXTREMITY [None]
  - SWELLING [None]
